FAERS Safety Report 17360804 (Version 1)
Quarter: 2020Q1

REPORT INFORMATION
  Report Type: Spontaneous
  Country: US (occurrence: US)
  Receive Date: 20200203
  Receipt Date: 20200203
  Transmission Date: 20200409
  Serious: No
  Sender: FDA-Public Use
  Company Number: US-BAYER-2020-019086

PATIENT
  Age: 90 Year
  Sex: Female

DRUGS (1)
  1. MIRALAX [Suspect]
     Active Substance: POLYETHYLENE GLYCOL 3350
     Indication: GASTROINTESTINAL DISORDER
     Dosage: 1 DF
     Route: 048
     Dates: start: 20200130, end: 20200130

REACTIONS (4)
  - Incorrect dose administered [Unknown]
  - Diarrhoea [Recovered/Resolved]
  - Abdominal distension [Not Recovered/Not Resolved]
  - Physical product label issue [None]

NARRATIVE: CASE EVENT DATE: 20200130
